FAERS Safety Report 10625181 (Version 1)
Quarter: 2014Q4

REPORT INFORMATION
  Report Type: Spontaneous
  Country: US (occurrence: None)
  Receive Date: 20141121
  Receipt Date: 20141121
  Transmission Date: 20150529
  Serious: Yes (Life-Threatening)
  Sender: FDA-Public Use
  Company Number: AUR-APL-2013-08625

PATIENT
  Age: 59 Year
  Sex: Male
  Weight: 125.2 kg

DRUGS (6)
  1. NEXIUM(ESOMEPRAZOLE MAGNESIUM) [Concomitant]
  2. ASPIRIN (ACETYLSALICYLIC ACID) [Concomitant]
     Active Substance: ASPIRIN
  3. GLIMEPIRIDE(GLIMPIRIDE) [Concomitant]
  4. LANTUS SOLOSTAR (INSULIN GLARGIEN) [Concomitant]
  5. LOSARTAN POTASSIUM AND HYDROCHLOROTHIAZIDE [Suspect]
     Active Substance: HYDROCHLOROTHIAZIDE\LOSARTAN POTASSIUM
     Indication: HYPERTENSION
     Dosage: 1 DF, ONCE A DAY, ORAL
     Route: 048
     Dates: start: 20130307, end: 20130912
  6. METFORMIN(METORMIN) [Concomitant]

REACTIONS (1)
  - Hypotension [None]

NARRATIVE: CASE EVENT DATE: 20130912
